FAERS Safety Report 4384825-7 (Version None)
Quarter: 2004Q2

REPORT INFORMATION
  Report Type: 
  Country: None (occurrence: None)
  Receive Date: 20040621
  Receipt Date: 20040602
  Transmission Date: 20050107
  Serious: Yes (Hospitalization)
  Sender: FDA-Public Use
  Company Number: 601295

PATIENT
  Age: 76 Year
  Sex: Female

DRUGS (1)
  1. TISSEEL VH KIT [Suspect]
     Indication: LYMPHADENECTOMY
     Dosage: 5 CC; ONCE; TOPICAL
     Route: 061
     Dates: start: 20040514, end: 20040514

REACTIONS (3)
  - CELLULITIS [None]
  - OEDEMA PERIPHERAL [None]
  - PAIN IN EXTREMITY [None]
